FAERS Safety Report 26192754 (Version 1)
Quarter: 2025Q4

REPORT INFORMATION
  Report Type: Report from Study
  Country: BR (occurrence: BR)
  Receive Date: 20251223
  Receipt Date: 20251223
  Transmission Date: 20260117
  Serious: Yes (Other)
  Sender: ABBVIE
  Company Number: BR-ABBVIE-6524936

PATIENT
  Sex: Female

DRUGS (3)
  1. ELAHERE [Suspect]
     Active Substance: MIRVETUXIMAB SORAVTANSINE-GYNX
     Indication: Ovarian cancer
     Dosage: ADJUSTED (AIBW) BY 5MG/KG OF AIBW
     Route: 042
  2. ELAHERE [Suspect]
     Active Substance: MIRVETUXIMAB SORAVTANSINE-GYNX
     Indication: Ovarian cancer
     Dosage: ADJUSTED (AIBW) BY 6MG/KG OF AIBW
     Route: 042
  3. ELAHERE [Suspect]
     Active Substance: MIRVETUXIMAB SORAVTANSINE-GYNX
     Indication: Ovarian cancer
     Dosage: 100MG/20ML
     Route: 042

REACTIONS (4)
  - Keratopathy [Recovering/Resolving]
  - Vision blurred [Recovering/Resolving]
  - Fatigue [Unknown]
  - Vision blurred [Recovering/Resolving]
